FAERS Safety Report 9114961 (Version 2)
Quarter: 2013Q1

REPORT INFORMATION
  Report Type: Spontaneous
  Country: US (occurrence: US)
  Receive Date: 20130128
  Receipt Date: 20130228
  Transmission Date: 20140127
  Serious: Yes (Other)
  Sender: FDA-Public Use
  Company Number: US-ELI_LILLY_AND_COMPANY-US201301006087

PATIENT
  Sex: Male

DRUGS (2)
  1. FORTEO [Suspect]
     Indication: OSTEOPOROSIS
     Dosage: 20 UG, QD
  2. FORTEO [Suspect]
     Dosage: 20 UG, QD

REACTIONS (6)
  - Red blood cell sedimentation rate increased [Unknown]
  - Hypoacusis [Unknown]
  - Pain [Unknown]
  - Burning sensation [Unknown]
  - Nervous system disorder [Unknown]
  - Chest pain [Unknown]
